FAERS Safety Report 11524381 (Version 1)
Quarter: 2015Q3

REPORT INFORMATION
  Report Type: Spontaneous
  Country: FR (occurrence: FR)
  Receive Date: 20150918
  Receipt Date: 20150918
  Transmission Date: 20151125
  Serious: Yes (Hospitalization)
  Sender: FDA-Public Use
  Company Number: FR-TEVA-593447ISR

PATIENT
  Age: 59 Year
  Sex: Male

DRUGS (7)
  1. ETOPOSIDE TEVA [Suspect]
     Active Substance: ETOPOSIDE
     Indication: ACUTE LYMPHOCYTIC LEUKAEMIA
     Dosage: BLOCK 3 OF THE FIRST CONSOLIDATION ACCORDING TO THE PROTOCOL GRAAL2013. AT DAY 29 AND DAY 30.
     Route: 041
  2. DEPO-MEDROL [Concomitant]
     Active Substance: METHYLPREDNISOLONE ACETATE
     Indication: ACUTE LYMPHOCYTIC LEUKAEMIA
     Dosage: BLOCK 3 OF THE FIRST CONSOLIDATION ACCORDING TO THE PROTOCOL GRAAL2013. AT DAY 29
     Route: 037
  3. METHOTREXATE [Suspect]
     Active Substance: METHOTREXATE
     Dosage: BLOCK 3 OF THE FIRST CONSOLIDATION ACCORDING TO THE PROTOCOL GRAAL2013
     Route: 039
  4. CYTARABINE SANDOZ [Suspect]
     Active Substance: CYTARABINE
     Indication: ACUTE LYMPHOCYTIC LEUKAEMIA
     Dosage: BLOCK 3 OF THE FIRST CONSOLIDATION ACCORDING TO THE PROTOCOL GRAAL2013. AT DAY 29
     Route: 037
  5. KYTRIL 3 MG [Concomitant]
     Indication: ACUTE LYMPHOCYTIC LEUKAEMIA
     Route: 041
  6. METHOTREXATE [Suspect]
     Active Substance: METHOTREXATE
     Indication: ACUTE LYMPHOCYTIC LEUKAEMIA
     Dosage: BLOCK 3 OF THE FIRST CONSOLIDATION ACCORDING TO THE PROTOCOL GRAAL2013. AT DAY 29
     Route: 041
  7. ENDOXAN [Suspect]
     Active Substance: CYCLOPHOSPHAMIDE
     Indication: ACUTE LYMPHOCYTIC LEUKAEMIA
     Dosage: BLOCK 3 OF THE FIRST CONSOLIDATION ACCORDING TO THE PROTOCOL GRAAL2013. AT DAY 29 AND DAY 30
     Route: 041

REACTIONS (1)
  - Bone marrow failure [Recovered/Resolved]

NARRATIVE: CASE EVENT DATE: 201505
